FAERS Safety Report 10915245 (Version 4)
Quarter: 2015Q1

REPORT INFORMATION
  Report Type: Spontaneous
  Country: US (occurrence: US)
  Receive Date: 20150316
  Receipt Date: 20150330
  Transmission Date: 20150721
  Serious: Yes (Other)
  Sender: FDA-Public Use
  Company Number: US-AMGEN-USASP2015022691

PATIENT

DRUGS (4)
  1. REMICADE [Concomitant]
     Active Substance: INFLIXIMAB
     Dosage: UNK
  2. PREDNISONE. [Suspect]
     Active Substance: PREDNISONE
     Indication: PRODUCT USED FOR UNKNOWN INDICATION
     Dosage: 40 MG, UNK
     Route: 065
  3. HUMIRA [Suspect]
     Active Substance: ADALIMUMAB
     Indication: PRODUCT USED FOR UNKNOWN INDICATION
     Dosage: UNK
     Route: 065
  4. ENBREL [Suspect]
     Active Substance: ETANERCEPT
     Indication: RHEUMATOID ARTHRITIS
     Dosage: 50 MG, UNK
     Route: 065

REACTIONS (21)
  - Feeling abnormal [Unknown]
  - Tendon pain [Unknown]
  - Groin pain [Unknown]
  - Blepharitis [Unknown]
  - Joint swelling [Unknown]
  - Arthralgia [Unknown]
  - Pain in extremity [Unknown]
  - Muscle oedema [Unknown]
  - Intervertebral disc protrusion [Unknown]
  - Scoliosis [Unknown]
  - Limb deformity [Unknown]
  - Skin exfoliation [Unknown]
  - Bone pain [Unknown]
  - Drug ineffective [Unknown]
  - Rheumatoid arthritis [Unknown]
  - Petechiae [Unknown]
  - Lymphoedema [Unknown]
  - Eye disorder [Unknown]
  - Peripheral swelling [Unknown]
  - Swelling [Unknown]
  - Lymphatic disorder [Unknown]
